FAERS Safety Report 24553344 (Version 1)
Quarter: 2024Q4

REPORT INFORMATION
  Report Type: Spontaneous
  Country: DE (occurrence: DE)
  Receive Date: 20241028
  Receipt Date: 20241028
  Transmission Date: 20250115
  Serious: Yes (Death, Other)
  Sender: ARGENX BVBA
  Company Number: DE-ARGENX-2024-ARGX-DE009384

PATIENT

DRUGS (1)
  1. EFGARTIGIMOD ALFA [Suspect]
     Active Substance: EFGARTIGIMOD ALFA
     Indication: Product used for unknown indication
     Dosage: UNK
     Route: 042
     Dates: start: 202408

REACTIONS (1)
  - Death [Fatal]
